FAERS Safety Report 9959317 (Version 1)
Quarter: 2014Q1

REPORT INFORMATION
  Report Type: Report from Study
  Country: US (occurrence: US)
  Receive Date: 20140305
  Receipt Date: 20140305
  Transmission Date: 20141002
  Serious: No
  Sender: FDA-Public Use
  Company Number: US-ABBVIE-13P-163-1104436-00

PATIENT
  Sex: Male

DRUGS (3)
  1. HUMIRA [Suspect]
     Indication: COLITIS ULCERATIVE
     Dates: start: 20130128
  2. APRISO [Concomitant]
     Indication: COLITIS ULCERATIVE
     Dosage: DAILY
  3. LOSARTAN + HIDROCLOROTIAZIDA [Concomitant]
     Indication: HYPERTENSION
     Dosage: DAILY

REACTIONS (4)
  - Joint swelling [Not Recovered/Not Resolved]
  - Injury [Not Recovered/Not Resolved]
  - Arthropathy [Unknown]
  - Arthralgia [Not Recovered/Not Resolved]
